FAERS Safety Report 7639398-X (Version None)
Quarter: 2011Q3

REPORT INFORMATION
  Report Type: 
  Country: None (occurrence: None)
  Receive Date: 20110721
  Receipt Date: 20110705
  Transmission Date: 20111222
  Serious: Yes (Hospitalization)
  Sender: FDA-Public Use
  Company Number: PYR-11-17

PATIENT
  Age: 44 Year
  Sex: Male

DRUGS (4)
  1. ETHAMBUTOL HYDROCHLORIDE [Concomitant]
  2. PYRAZINAMIDE [Suspect]
     Indication: TUBERCULOSIS
     Dosage: 1750MG DAY
  3. ISONIAZID [Concomitant]
  4. RIFAMPICIN [Concomitant]

REACTIONS (3)
  - IMMUNE RECONSTITUTION SYNDROME [None]
  - ACUTE RESPIRATORY DISTRESS SYNDROME [None]
  - PSEUDOMONAS INFECTION [None]
